FAERS Safety Report 7063245-0 (Version None)
Quarter: 2010Q4

REPORT INFORMATION
  Report Type: 
  Country: None (occurrence: None)
  Receive Date: 20101026
  Receipt Date: 20100624
  Transmission Date: 20110411
  Serious: No
  Sender: FDA-Public Use
  Company Number: US-PFIZER INC-2010052601

PATIENT
  Sex: Male
  Weight: 85.261 kg

DRUGS (8)
  1. LIPITOR [Suspect]
     Indication: BLOOD CHOLESTEROL
     Dosage: 20 MG, 1X/DAY
     Route: 048
     Dates: start: 20070101, end: 20100423
  2. LIPITOR [Suspect]
     Indication: DYSLIPIDAEMIA
  3. RAMIPRIL [Concomitant]
     Dosage: 2.5 MG, UNK
  4. NIASPAN [Concomitant]
     Dosage: UNK
  5. OMEGA-3 TRIGLYCERIDES [Concomitant]
     Dosage: UNK
  6. METROGEL [Concomitant]
     Dosage: UNK
  7. DOXYCYCLINE [Concomitant]
     Dosage: UNK
  8. ACETYLSALICYLIC ACID [Concomitant]
     Dosage: 81 MG, UNK

REACTIONS (1)
  - ARTHRALGIA [None]
